FAERS Safety Report 24194201 (Version 1)
Quarter: 2024Q3

REPORT INFORMATION
  Report Type: Spontaneous
  Country: CN (occurrence: CN)
  Receive Date: 20240809
  Receipt Date: 20240809
  Transmission Date: 20241017
  Serious: Yes (Other)
  Sender: JOHNSON AND JOHNSON
  Company Number: CN-JNJFOC-20240805873

PATIENT
  Age: 5 Year
  Sex: Male

DRUGS (4)
  1. CHILDRENS MOTRIN [Suspect]
     Active Substance: IBUPROFEN
     Indication: Pyrexia
     Route: 048
     Dates: start: 20240706, end: 20240707
  2. AMPICILLIN [Concomitant]
     Active Substance: AMPICILLIN
     Indication: Anti-infective therapy
     Route: 042
     Dates: start: 20240706
  3. AMPICILLIN [Concomitant]
     Active Substance: AMPICILLIN
     Indication: Upper respiratory tract infection
  4. RE DU NING [Concomitant]
     Indication: Detoxification
     Route: 042
     Dates: start: 20240706

REACTIONS (3)
  - Inappropriate schedule of product administration [Recovering/Resolving]
  - Hyperhidrosis [Recovering/Resolving]
  - Vomiting [Recovering/Resolving]

NARRATIVE: CASE EVENT DATE: 20240706
